FAERS Safety Report 8803384 (Version 2)
Quarter: 2013Q1

REPORT INFORMATION
  Report Type: Report from Study
  Country: NL (occurrence: NL)
  Receive Date: 20120924
  Receipt Date: 20130104
  Transmission Date: 20140127
  Serious: Yes (Hospitalization)
  Sender: FDA-Public Use
  Company Number: NL-GENZYME-CLOF-1002279

PATIENT
  Age: 63 Year
  Sex: Male
  Weight: 84 kg

DRUGS (5)
  1. EVOLTRA [Suspect]
     Indication: ACUTE MYELOID LEUKAEMIA
     Dosage: 20 MG, UNK
     Route: 042
     Dates: start: 20120515
  2. CYTARABINE [Suspect]
     Indication: ACUTE MYELOID LEUKAEMIA
     Dosage: 6000 MG, UNK
     Route: 042
     Dates: start: 20120515
  3. AMSACRINE [Suspect]
     Indication: ACUTE MYELOID LEUKAEMIA
     Dosage: 250 MG, UNK
     Route: 042
     Dates: start: 20120518
  4. FUROSEMIDE [Concomitant]
     Indication: PROPHYLAXIS
     Dosage: 20 MG, UNK
     Route: 048
     Dates: start: 20120806
  5. METOPROLOL [Concomitant]
     Indication: HYPERTENSION
     Dosage: 100 MG, UNK
     Route: 048
     Dates: start: 20120611

REACTIONS (4)
  - Cardiac failure [Recovered/Resolved with Sequelae]
  - Pulmonary oedema [Recovered/Resolved]
  - Respiratory failure [Recovered/Resolved]
  - Fatigue [Recovered/Resolved]
